FAERS Safety Report 8208776-2 (Version None)
Quarter: 2012Q1

REPORT INFORMATION
  Report Type: 
  Country: None (occurrence: None)
  Receive Date: 20120227
  Receipt Date: 20111117
  Transmission Date: 20120608
  Serious: No
  Sender: FDA-Public Use
  Company Number: 339656

PATIENT
  Age: 77 Year
  Sex: Male
  Weight: 290 kg

DRUGS (1)
  1. VICTOZA [Suspect]
     Indication: TYPE 2 DIABETES MELLITUS
     Dosage: 1.8 MG, QD, SUBCUTANEOUS
     Route: 058
     Dates: end: 20111116

REACTIONS (3)
  - HYPOAESTHESIA [None]
  - WEIGHT DECREASED [None]
  - PAIN [None]
